FAERS Safety Report 7380106-8 (Version None)
Quarter: 2011Q1

REPORT INFORMATION
  Report Type: 
  Country: None (occurrence: None)
  Receive Date: 20110329
  Receipt Date: 20100527
  Transmission Date: 20110831
  Serious: No
  Sender: FDA-Public Use
  Company Number: US-MYLANLABS-2010S1005976

PATIENT
  Sex: Female

DRUGS (5)
  1. ESTRADIOL [Suspect]
     Dosage: CHANGED QW
     Route: 062
     Dates: start: 20100315
  2. ESTRADIOL [Suspect]
     Indication: MENOPAUSE
     Dosage: CHANGED QW
     Route: 062
     Dates: start: 20100223, end: 20100314
  3. ESTRADIOL [Suspect]
     Dosage: CHANGED QW
     Route: 062
     Dates: start: 20100315
  4. PROGESTERONE [Concomitant]
     Route: 061
  5. ESTRADIOL [Suspect]
     Indication: HORMONE REPLACEMENT THERAPY
     Dosage: CHANGED QW
     Route: 062
     Dates: start: 20100223, end: 20100314

REACTIONS (4)
  - HOT FLUSH [None]
  - DRUG EFFECT DECREASED [None]
  - INSOMNIA [None]
  - FEELING ABNORMAL [None]
